FAERS Safety Report 18784520 (Version 5)
Quarter: 2021Q3

REPORT INFORMATION
  Report Type: Spontaneous
  Country: US (occurrence: US)
  Receive Date: 20210126
  Receipt Date: 20210922
  Transmission Date: 20211014
  Serious: No
  Sender: FDA-Public Use
  Company Number: US-SA-2021SA020664

PATIENT
  Age: 62 Year
  Sex: Male

DRUGS (2)
  1. DUPIXENT [Suspect]
     Active Substance: DUPILUMAB
     Dosage: 300 MG, QOW
     Route: 058
  2. DUPIXENT [Suspect]
     Active Substance: DUPILUMAB
     Indication: DERMATITIS ATOPIC
     Dosage: 600 MG, 1X
     Route: 058
     Dates: start: 201712, end: 201712

REACTIONS (8)
  - Rash macular [Unknown]
  - Skin disorder [Unknown]
  - Dermatitis acneiform [Unknown]
  - Fall [Unknown]
  - Product dose omission in error [Unknown]
  - Rib fracture [Unknown]
  - Oropharyngeal pain [Unknown]
  - Throat irritation [Unknown]

NARRATIVE: CASE EVENT DATE: 202101
